FAERS Safety Report 8889903 (Version 1)
Quarter: 2012Q4

REPORT INFORMATION
  Report Type: Spontaneous
  Country: US (occurrence: None)
  Receive Date: 20121102
  Receipt Date: 20121102
  Transmission Date: 20130627
  Serious: Yes (Other)
  Sender: FDA-Public Use
  Company Number: None

PATIENT
  Age: 97 Year
  Sex: Male
  Weight: 73.03 kg

DRUGS (1)
  1. XARELTO [Suspect]

REACTIONS (3)
  - Arthralgia [None]
  - Pain in extremity [None]
  - Knee arthroplasty [None]
